FAERS Safety Report 6612642-3 (Version None)
Quarter: 2010Q1

REPORT INFORMATION
  Report Type: 
  Country: None (occurrence: None)
  Receive Date: 20100303
  Receipt Date: 20100222
  Transmission Date: 20100710
  Serious: No
  Sender: FDA-Public Use
  Company Number: US-B.I. PHARMACEUTICALS,INC./RIDGEFIELD-2010-BP-02165BP

PATIENT
  Sex: Female
  Weight: 77.11 kg

DRUGS (9)
  1. MELOXICAM [Suspect]
     Indication: ARTHRITIS
  2. MELOXICAM [Suspect]
     Indication: BACK PAIN
  3. LYRICA [Suspect]
     Indication: ARTHRITIS
     Dosage: 50 MG
     Route: 048
  4. LYRICA [Suspect]
     Indication: BACK PAIN
     Dosage: 200 MG
     Route: 048
     Dates: start: 20091229
  5. NARDIL [Concomitant]
  6. ACIPHEX [Concomitant]
  7. LASIX [Concomitant]
  8. SULAR [Concomitant]
  9. SIMVASTATIN [Concomitant]
     Indication: BLOOD CHOLESTEROL INCREASED

REACTIONS (2)
  - ABDOMINAL DISCOMFORT [None]
  - DIZZINESS [None]
